FAERS Safety Report 7586925-7 (Version None)
Quarter: 2011Q3

REPORT INFORMATION
  Report Type: 
  Country: None (occurrence: None)
  Receive Date: 20110701
  Receipt Date: 20110621
  Transmission Date: 20111222
  Serious: Yes (Death, Hospitalization)
  Sender: FDA-Public Use
  Company Number: NO-MYLANLABS-2011S1013326

PATIENT
  Age: 59 Year
  Sex: Male

DRUGS (6)
  1. BENDROFLUMETHIAZIDE [Concomitant]
     Route: 065
  2. ISOSORBIDE MONONITRATE [Concomitant]
     Route: 065
  3. MIRTAZAPINE [Suspect]
     Dosage: 60MG ONCE DAILY
     Route: 065
  4. ATENOLOL [Concomitant]
     Route: 065
  5. AMITRIPTYLINE HCL [Suspect]
     Dosage: 125MG ONCE DAILY
     Route: 065
  6. ALPRAZOLAM [Concomitant]
     Dosage: 4MG ONCE DAILY
     Route: 065

REACTIONS (4)
  - MULTI-ORGAN FAILURE [None]
  - DISSEMINATED INTRAVASCULAR COAGULATION [None]
  - SEROTONIN SYNDROME [None]
  - TOXICITY TO VARIOUS AGENTS [None]
